FAERS Safety Report 4677132-6 (Version None)
Quarter: 2005Q2

REPORT INFORMATION
  Report Type: 
  Country: None (occurrence: None)
  Receive Date: 20050525
  Receipt Date: 20050525
  Transmission Date: 20051028
  Serious: No
  Sender: FDA-Public Use
  Company Number: None

PATIENT
  Age: 27 Year
  Sex: Female
  Weight: 70.3075 kg

DRUGS (1)
  1. CLINDAMYCIN   1%    PLEDGET [Suspect]
     Indication: ACNE
     Dosage: TWICE   DAY   TOPICAL
     Route: 061
     Dates: start: 20050504, end: 20050516

REACTIONS (1)
  - COLITIS [None]
